FAERS Safety Report 9184604 (Version 1)
Quarter: 2013Q1

REPORT INFORMATION
  Report Type: Spontaneous
  Country: NL (occurrence: NL)
  Receive Date: 20130324
  Receipt Date: 20130324
  Transmission Date: 20140127
  Serious: Yes (Hospitalization)
  Sender: FDA-Public Use
  Company Number: PHHY2013NL026196

PATIENT
  Sex: Male

DRUGS (5)
  1. AMOXICILLIN [Suspect]
     Dosage: UNK UKN, UNK
  2. VANCOMYCIN [Suspect]
  3. CARVEDILOL [Suspect]
  4. LOSARTAN [Suspect]
  5. ACENOCOUMAROL [Suspect]

REACTIONS (2)
  - Dyspnoea [Not Recovered/Not Resolved]
  - Dizziness [Not Recovered/Not Resolved]
